FAERS Safety Report 7447349-6 (Version None)
Quarter: 2011Q2

REPORT INFORMATION
  Report Type: 
  Country: None (occurrence: None)
  Receive Date: 20110429
  Receipt Date: 20110428
  Transmission Date: 20111010
  Serious: Yes (Other)
  Sender: FDA-Public Use
  Company Number: JP-ROCHE-773837

PATIENT

DRUGS (1)
  1. ACTEMRA [Suspect]
     Indication: RHEUMATOID ARTHRITIS
     Dosage: ROUTE::INTRAVENOUS DRIP DOSAGE IS UNCERTAIN.
     Route: 042

REACTIONS (1)
  - EMBOLIC CEREBRAL INFARCTION [None]
